FAERS Safety Report 6816855-7 (Version None)
Quarter: 2010Q3

REPORT INFORMATION
  Report Type: 
  Country: None (occurrence: None)
  Receive Date: 20100706
  Receipt Date: 20100625
  Transmission Date: 20110219
  Serious: Yes (Other)
  Sender: FDA-Public Use
  Company Number: US-JNJFOC-20070105719

PATIENT
  Sex: Female
  Weight: 41.28 kg

DRUGS (5)
  1. RISPERDAL [Suspect]
     Indication: SLEEP DISORDER THERAPY
  2. SEROQUEL [Suspect]
     Indication: SLEEP DISORDER THERAPY
  3. SEROQUEL [Suspect]
     Indication: BIPOLAR I DISORDER
  4. ZYPREXA [Suspect]
     Indication: ANXIETY
  5. CITALOPRAM [Concomitant]

REACTIONS (1)
  - TYPE 2 DIABETES MELLITUS [None]
